FAERS Safety Report 22079792 (Version 1)
Quarter: 2023Q1

REPORT INFORMATION
  Report Type: Spontaneous
  Country: GB (occurrence: None)
  Receive Date: 20230309
  Receipt Date: 20230309
  Transmission Date: 20230417
  Serious: Yes (Other)
  Sender: FDA-Public Use
  Company Number: None

PATIENT
  Age: 69 Year
  Sex: Female

DRUGS (1)
  1. HYDROCORTISONE\MICONAZOLE NITRATE [Suspect]
     Active Substance: HYDROCORTISONE\MICONAZOLE NITRATE

REACTIONS (4)
  - Balance disorder [None]
  - Vision blurred [None]
  - Vertigo [None]
  - Visual impairment [None]

NARRATIVE: CASE EVENT DATE: 20230225
